FAERS Safety Report 17406154 (Version 2)
Quarter: 2020Q1

REPORT INFORMATION
  Report Type: Spontaneous
  Country: US (occurrence: US)
  Receive Date: 20200212
  Receipt Date: 20200313
  Transmission Date: 20200409
  Serious: No
  Sender: FDA-Public Use
  Company Number: US-GLAXOSMITHKLINE-US2020019629

PATIENT
  Sex: Male

DRUGS (2)
  1. BLISTEX [Concomitant]
     Active Substance: BENZOCAINE
     Indication: ORAL HERPES
     Dosage: UNK
  2. ABREVA [Suspect]
     Active Substance: DOCOSANOL
     Indication: ORAL HERPES
     Dosage: UNK (I USED IT FOR 2 WEEKS, USED 3 TIMES OR MORE)
     Dates: start: 20200113, end: 20200122

REACTIONS (5)
  - Oral herpes [Recovered/Resolved]
  - Condition aggravated [Recovered/Resolved]
  - Application site haemorrhage [Recovered/Resolved]
  - Inappropriate schedule of product administration [Unknown]
  - Wrong technique in product usage process [Unknown]
